FAERS Safety Report 4285193-1 (Version None)
Quarter: 2004Q1

REPORT INFORMATION
  Report Type: 
  Country: None (occurrence: None)
  Receive Date: 20040203
  Receipt Date: 20040203
  Transmission Date: 20041129
  Serious: Yes (Hospitalization)
  Sender: FDA-Public Use
  Company Number: None

PATIENT
  Sex: Female

DRUGS (9)
  1. ACYCLOVIR [Suspect]
     Indication: ENCEPHALITIS HERPES
     Dosage: 600 MG Q12 IV
     Route: 042
  2. PHENOBARBITAL TAB [Concomitant]
  3. ACETAMINOPHEN [Concomitant]
  4. DILANTIN [Concomitant]
  5. RANITIDINE [Concomitant]
  6. HEPARIN [Concomitant]
  7. DEXTROSE 5% WATER [Concomitant]
  8. SODIUM CHLORIDE 0.9% [Concomitant]
  9. LORAZEPAM [Concomitant]

REACTIONS (2)
  - NEPHROPATHY TOXIC [None]
  - RENAL FAILURE ACUTE [None]
